FAERS Safety Report 5389988-2 (Version None)
Quarter: 2007Q3

REPORT INFORMATION
  Report Type: 
  Country: None (occurrence: None)
  Receive Date: 20070718
  Receipt Date: 20070712
  Transmission Date: 20080115
  Serious: Yes (Death, Hospitalization)
  Sender: FDA-Public Use
  Company Number: ES-BAYER-200713688GDS

PATIENT
  Age: 77 Year
  Sex: Female

DRUGS (5)
  1. NEXAVAR [Suspect]
     Indication: DRUG USE FOR UNKNOWN INDICATION
     Route: 065
     Dates: start: 20070322, end: 20070419
  2. ALDACTONE [Concomitant]
     Indication: DRUG USE FOR UNKNOWN INDICATION
     Route: 065
  3. SEGURIL [Concomitant]
     Indication: DRUG USE FOR UNKNOWN INDICATION
     Route: 065
  4. GELOCATIL [Concomitant]
     Indication: DRUG USE FOR UNKNOWN INDICATION
     Route: 065
  5. MAYGACE [Concomitant]
     Indication: DRUG USE FOR UNKNOWN INDICATION
     Route: 065

REACTIONS (2)
  - HEPATIC ENCEPHALOPATHY [None]
  - HEPATIC FAILURE [None]
